FAERS Safety Report 5080714-3 (Version None)
Quarter: 2006Q3

REPORT INFORMATION
  Report Type: 
  Country: None (occurrence: None)
  Receive Date: 20060809
  Receipt Date: 20060728
  Transmission Date: 20061208
  Serious: Yes (Hospitalization, Disabling)
  Sender: FDA-Public Use
  Company Number: HQWYE060209JUN06

PATIENT
  Age: 57 Year
  Sex: Male

DRUGS (12)
  1. AMIODARONE HCL [Suspect]
     Indication: VENTRICULAR TACHYCARDIA
     Dosage: 200 MG 2X PER 1 DAY ORAL - SEE IMAGE
     Route: 048
     Dates: start: 20030108, end: 20050907
  2. AMIODARONE HCL [Suspect]
     Indication: VENTRICULAR TACHYCARDIA
     Dosage: 200 MG 2X PER 1 DAY ORAL - SEE IMAGE
     Route: 048
     Dates: start: 20021101
  3. AMIODARONE HCL [Suspect]
     Indication: VENTRICULAR TACHYCARDIA
     Dosage: 200 MG 2X PER 1 DAY ORAL - SEE IMAGE
     Route: 048
     Dates: start: 20051124
  4. DIGOXIN [Concomitant]
  5. SPIRONOLACTONE [Concomitant]
  6. ETIZOLAM (ETIZOLAM) [Concomitant]
  7. WARFARIN SODIUM [Concomitant]
  8. VERAPAMIL [Concomitant]
  9. ENALAPRIL (ENALAPRIL0 [Concomitant]
  10. RABEPRAZOLE (RABEPRAZOLE) [Concomitant]
  11. FUROSEMIDE [Concomitant]
  12. BISOPROLOL FUMARATE [Concomitant]

REACTIONS (9)
  - ANXIETY DISORDER [None]
  - BRONCHOPNEUMONIA [None]
  - CARDIAC FAILURE CONGESTIVE [None]
  - GASTRIC ULCER [None]
  - HEPATIC FUNCTION ABNORMAL [None]
  - HYPERTENSION [None]
  - THYROIDITIS [None]
  - VENTRICULAR FIBRILLATION [None]
  - VENTRICULAR TACHYCARDIA [None]
